FAERS Safety Report 6235480-2 (Version None)
Quarter: 2009Q2

REPORT INFORMATION
  Report Type: 
  Country: None (occurrence: None)
  Receive Date: 20090618
  Receipt Date: 20080502
  Transmission Date: 20091009
  Serious: No
  Sender: FDA-Public Use
  Company Number: US-ASTRAZENECA-2008UW09139

PATIENT
  Age: 44 Year
  Sex: Female

DRUGS (2)
  1. RHINOCORT [Suspect]
     Indication: MULTIPLE ALLERGIES
     Route: 045
  2. CLARINEX [Concomitant]

REACTIONS (1)
  - HYPOAESTHESIA FACIAL [None]
